FAERS Safety Report 16764612 (Version 1)
Quarter: 2019Q3

REPORT INFORMATION
  Report Type: Spontaneous
  Country: CN (occurrence: CN)
  Receive Date: 20190902
  Receipt Date: 20190902
  Transmission Date: 20191005
  Serious: Yes (Other)
  Sender: FDA-Public Use
  Company Number: PHHY2019CN203620

PATIENT
  Age: 62 Year
  Sex: Male

DRUGS (1)
  1. ZOLEDRONATE [Suspect]
     Active Substance: ZOLEDRONIC ACID
     Indication: PLASMA CELL MYELOMA
     Dosage: 4 MG, QMO
     Route: 065
     Dates: start: 201508, end: 201708

REACTIONS (5)
  - Osteonecrosis of jaw [Unknown]
  - Product use in unapproved indication [Unknown]
  - Hypoaesthesia oral [Unknown]
  - Gingival disorder [Unknown]
  - Gingival swelling [Unknown]

NARRATIVE: CASE EVENT DATE: 201710
